FAERS Safety Report 26034405 (Version 2)
Quarter: 2025Q4

REPORT INFORMATION
  Report Type: Spontaneous
  Country: US (occurrence: US)
  Receive Date: 20251112
  Receipt Date: 20251121
  Transmission Date: 20260117
  Serious: Yes (Life-Threatening, Hospitalization)
  Sender: PROCTER AND GAMBLE
  Company Number: US-MLMSERVICE-20251027-PI688061-00029-1

PATIENT
  Age: 26 Year
  Sex: Female

DRUGS (2)
  1. ACETAMINOPHEN [Suspect]
     Active Substance: ACETAMINOPHEN
     Dosage: UNK
  2. ESCITALOPRAM [Concomitant]
     Active Substance: ESCITALOPRAM OXALATE
     Indication: Major depression
     Dosage: 10 MILLIGRAM, 1 /DAY

REACTIONS (9)
  - Rhabdomyolysis [Recovering/Resolving]
  - Aspartate aminotransferase increased [Recovering/Resolving]
  - Alanine aminotransferase increased [Recovering/Resolving]
  - Intentional overdose [Unknown]
  - Suicide attempt [Unknown]
  - Blood creatine phosphokinase increased [Recovering/Resolving]
  - Confusional state [Unknown]
  - Toxicity to various agents [Unknown]
  - Intentional product use issue [Unknown]
